FAERS Safety Report 9629929 (Version 1)
Quarter: 2013Q4

REPORT INFORMATION
  Report Type: Spontaneous
  Country: US (occurrence: US)
  Receive Date: 20131017
  Receipt Date: 20131017
  Transmission Date: 20140711
  Serious: Yes (Other)
  Sender: FDA-Public Use
  Company Number: US-PFIZER INC-2013292022

PATIENT
  Age: 46 Year
  Sex: Female

DRUGS (3)
  1. CYCLOPHOSPHAMIDE [Suspect]
     Indication: BONE MARROW CONDITIONING REGIMEN
     Dosage: 120 MG/KG
     Route: 042
  2. METHOTREXATE SODIUM [Suspect]
     Indication: ACUTE GRAFT VERSUS HOST DISEASE
  3. BUSULFAN [Suspect]
     Indication: CHEMOTHERAPY
     Dosage: 16 MG/KG
     Route: 048

REACTIONS (2)
  - Second primary malignancy [Recovering/Resolving]
  - Kaposi^s sarcoma [Recovering/Resolving]
